FAERS Safety Report 17000111 (Version 5)
Quarter: 2019Q4

REPORT INFORMATION
  Report Type: Spontaneous
  Country: BR (occurrence: BR)
  Receive Date: 20191106
  Receipt Date: 20191120
  Transmission Date: 20200122
  Serious: Yes (Hospitalization, Disabling, Other)
  Sender: FDA-Public Use
  Company Number: BR-ABBVIE-19P-020-2993006-00

PATIENT
  Age: 1 Year
  Sex: Male

DRUGS (4)
  1. RANITIDINE. [Concomitant]
     Active Substance: RANITIDINE
     Indication: GASTRIC DISORDER
     Route: 050
     Dates: start: 20191022
  2. KLARICID [Suspect]
     Active Substance: CLARITHROMYCIN
     Indication: PYREXIA
     Dosage: DAILY DOSE: PHYSICIAN CORRECTED THAT DOSE WAS ADMINISTERED AT 16H00?25MG/ML
     Route: 048
     Dates: start: 20191024, end: 20191024
  3. DIPIRONA [Concomitant]
     Active Substance: METAMIZOLE
     Indication: PYREXIA
     Route: 050
     Dates: start: 20191022
  4. KLARICID [Suspect]
     Active Substance: CLARITHROMYCIN
     Indication: PNEUMONIA
     Dosage: DAILY DOSE: SECOND DOSE IN THE MIDDLE OF THE NIGHT
     Route: 048
     Dates: start: 20191025

REACTIONS (5)
  - Depressed level of consciousness [Recovered/Resolved]
  - Off label use [Unknown]
  - Incorrect dose administered [Unknown]
  - Sleep disorder [Unknown]
  - Syncope [Recovered/Resolved]

NARRATIVE: CASE EVENT DATE: 20191025
